FAERS Safety Report 9027289 (Version 1)
Quarter: 2013Q1

REPORT INFORMATION
  Report Type: Spontaneous
  Country: CA (occurrence: CA)
  Receive Date: 20130123
  Receipt Date: 20130123
  Transmission Date: 20140127
  Serious: Yes (Other)
  Sender: FDA-Public Use
  Company Number: CA-VERTEX PHARMACEUTICALS INC.-2013-001021

PATIENT
  Sex: Male

DRUGS (6)
  1. INCIVEK [Suspect]
     Indication: HEPATITIS C
     Dosage: 750 MG, TID
     Route: 048
     Dates: start: 20121010
  2. PEGASYS [Suspect]
     Indication: HEPATITIS C
     Dosage: 180 ?G, QW
     Dates: start: 20121010, end: 20121126
  3. PEGASYS [Suspect]
     Dosage: 90 ?G, QW
     Dates: start: 20121210, end: 20121223
  4. PEGASYS [Suspect]
     Dosage: 135 ?G, QW
     Dates: start: 20121224
  5. PEGASYS [Suspect]
     Dosage: 90 ?G, QW
  6. COPEGUS [Suspect]
     Indication: HEPATITIS C
     Dosage: 1200 MG, QD
     Dates: start: 20121010

REACTIONS (1)
  - White blood cell count decreased [Not Recovered/Not Resolved]
